FAERS Safety Report 4625212-3 (Version None)
Quarter: 2005Q2

REPORT INFORMATION
  Report Type: 
  Country: None (occurrence: None)
  Receive Date: 20050401
  Receipt Date: 20050113
  Transmission Date: 20051028
  Serious: Yes (Other)
  Sender: FDA-Public Use
  Company Number: US-MERCK-0501USA01411

PATIENT
  Sex: Male
  Weight: 87 kg

DRUGS (2)
  1. PROSCAR [Suspect]
     Route: 048
     Dates: start: 20010121, end: 20030303
  2. CASODEX [Concomitant]
     Route: 065
     Dates: start: 19990101

REACTIONS (11)
  - ANAEMIA [None]
  - ARTHROPATHY [None]
  - CARDIAC FAILURE CONGESTIVE [None]
  - ECCHYMOSIS [None]
  - FAECAL OCCULT BLOOD POSITIVE [None]
  - GASTROENTERITIS RADIATION [None]
  - LIVER FUNCTION TEST ABNORMAL [None]
  - LYMPHADENOPATHY [None]
  - PARAESTHESIA [None]
  - PROSTATIC SPECIFIC ANTIGEN INCREASED [None]
  - RETINAL HAEMORRHAGE [None]
